FAERS Safety Report 24077954 (Version 2)
Quarter: 2024Q3

REPORT INFORMATION
  Report Type: Spontaneous
  Country: US (occurrence: US)
  Receive Date: 20240711
  Receipt Date: 20240815
  Transmission Date: 20241016
  Serious: No
  Sender: VIFOR
  Company Number: US-Vifor (International) Inc.-VIT-2024-05480

PATIENT
  Age: 32 Year
  Sex: Male
  Weight: 75 kg

DRUGS (3)
  1. MIRCERA [Suspect]
     Active Substance: METHOXY POLYETHYLENE GLYCOL-EPOETIN BETA
     Indication: Product used for unknown indication
  2. MIRCERA [Suspect]
     Active Substance: METHOXY POLYETHYLENE GLYCOL-EPOETIN BETA
     Dosage: MIRCERA DOSE NUMBER: 4 AND DOSE CATEGORY: DOSE 4
     Dates: start: 20240503, end: 2024
  3. VENOFER [Suspect]
     Active Substance: IRON SUCROSE
     Indication: Product used for unknown indication
     Route: 042

REACTIONS (6)
  - Drug hypersensitivity [Recovered/Resolved]
  - Malaise [Recovered/Resolved]
  - Anxiety [Recovered/Resolved]
  - Vomiting [Recovered/Resolved]
  - Nausea [Recovered/Resolved]
  - Headache [Recovered/Resolved]

NARRATIVE: CASE EVENT DATE: 20240101
